FAERS Safety Report 9128006 (Version 1)
Quarter: 2013Q1

REPORT INFORMATION
  Report Type: Spontaneous
  Country: US (occurrence: US)
  Receive Date: 20130228
  Receipt Date: 20130228
  Transmission Date: 20140127
  Serious: Yes (Other)
  Sender: FDA-Public Use
  Company Number: US-CELGENEUS-163-20785-13022887

PATIENT
  Sex: Male

DRUGS (1)
  1. THALOMID [Suspect]
     Indication: SPINAL CORD NEOPLASM
     Dosage: 50 MILLIGRAM
     Route: 048
     Dates: start: 201301

REACTIONS (1)
  - Intestinal obstruction [Unknown]
